FAERS Safety Report 5172154-3 (Version None)
Quarter: 2006Q4

REPORT INFORMATION
  Report Type: 
  Country: None (occurrence: None)
  Receive Date: 20061213
  Receipt Date: 20061206
  Transmission Date: 20070319
  Serious: Yes (Other)
  Sender: FDA-Public Use
  Company Number: US-BOEHRINGER INGELHEIM PHARMACEUTICALS, INC.-2006-DE-06496GD

PATIENT
  Age: 64 Year
  Sex: Male

DRUGS (3)
  1. IPRATROPIUM BROMIDE [Suspect]
     Indication: RESPIRATORY FAILURE
     Route: 055
  2. LEVALBUTEROL HCL [Concomitant]
     Indication: RESPIRATORY FAILURE
     Route: 055
  3. OXYGEN [Concomitant]
     Indication: RESPIRATORY FAILURE
     Route: 055

REACTIONS (1)
  - PUPILS UNEQUAL [None]
